FAERS Safety Report 10262413 (Version 1)
Quarter: 2014Q2

REPORT INFORMATION
  Report Type: Report from Study
  Country: CN (occurrence: CN)
  Receive Date: 20140626
  Receipt Date: 20140626
  Transmission Date: 20141212
  Serious: Yes (Life-Threatening, Hospitalization, Other)
  Sender: FDA-Public Use
  Company Number: CN-BAYER-2014-093998

PATIENT
  Sex: Male

DRUGS (2)
  1. NIMODIPINE [Suspect]
  2. CEREBROPROTEIN HYDROLYSATE [Interacting]

REACTIONS (2)
  - Anaphylactic shock [None]
  - Drug interaction [None]
